FAERS Safety Report 23634761 (Version 1)
Quarter: 2024Q1

REPORT INFORMATION
  Report Type: Spontaneous
  Country: US (occurrence: US)
  Receive Date: 20240315
  Receipt Date: 20240315
  Transmission Date: 20240410
  Serious: No
  Sender: FDA-Public Use
  Company Number: US-AVET LIFESCIENCES LTD-2024-AVET-000074

PATIENT

DRUGS (3)
  1. HYDRALAZINE HYDROCHLORIDE [Suspect]
     Active Substance: HYDRALAZINE HYDROCHLORIDE
     Indication: Hypertension
     Dosage: 25 MILLIGRAM, BID (HYDRALAZINE HCL 25MG PINK COATED TABLET TWICE DAY)
     Dates: start: 20230902, end: 20230909
  2. HYDRALAZINE HYDROCHLORIDE [Suspect]
     Active Substance: HYDRALAZINE HYDROCHLORIDE
     Dosage: 25 MILLIGRAM, QD (HYDRALAZINE HCL 25MG PINK COATED TABLET ONCE A DAY)
     Dates: start: 20230910, end: 20240213
  3. HYDRALAZINE HYDROCHLORIDE [Suspect]
     Active Substance: HYDRALAZINE HYDROCHLORIDE
     Dosage: 25 MILLIGRAM, BID (HYDRALAZINE HCL 25MG UNCOATED PEACH COLOUR TABLETS TWICE A DAY)
     Dates: start: 20240214

REACTIONS (2)
  - Hypotension [Recovered/Resolved]
  - Muscle spasms [Recovered/Resolved]

NARRATIVE: CASE EVENT DATE: 20230902
